FAERS Safety Report 7405939-0 (Version None)
Quarter: 2011Q2

REPORT INFORMATION
  Report Type: 
  Country: None (occurrence: None)
  Receive Date: 20110406
  Receipt Date: 20110406
  Transmission Date: 20111010
  Serious: No
  Sender: FDA-Public Use
  Company Number: None

PATIENT
  Age: 26 Year
  Sex: Male

DRUGS (9)
  1. BENADRYL [Concomitant]
  2. PANTOPRAZOLE [Concomitant]
  3. METHADROL [Suspect]
     Indication: WEIGHT CONTROL
     Dates: start: 20090201, end: 20090407
  4. ALBUTEROL [Concomitant]
  5. CREATINE [Concomitant]
  6. HYDROXYZINE [Concomitant]
  7. ONE-A-DAY MULTIVITAMIN [Concomitant]
  8. HYDROXYCUT [Concomitant]
     Indication: WEIGHT CONTROL
  9. ZOFRAN [Concomitant]

REACTIONS (3)
  - LIVER INJURY [None]
  - HEPATITIS ACUTE [None]
  - WEIGHT DECREASED [None]
